FAERS Safety Report 4486534-2 (Version None)
Quarter: 2004Q4

REPORT INFORMATION
  Report Type: 
  Country: None (occurrence: None)
  Receive Date: 20041027
  Receipt Date: 20040916
  Transmission Date: 20050328
  Serious: Yes (Other)
  Sender: FDA-Public Use
  Company Number: CH-BRISTOL-MYERS SQUIBB COMPANY-12705497

PATIENT
  Age: 49 Year
  Sex: Female
  Weight: 87 kg

DRUGS (2)
  1. ABILIFY [Suspect]
     Route: 048
     Dates: start: 20040820, end: 20040903
  2. EFFEXOR [Concomitant]

REACTIONS (7)
  - COGNITIVE DISORDER [None]
  - DISORIENTATION [None]
  - HYPOAESTHESIA [None]
  - MOTOR DYSFUNCTION [None]
  - SENSORY DISTURBANCE [None]
  - SLEEP DISORDER [None]
  - VERTIGO [None]
